FAERS Safety Report 9665125 (Version 1)
Quarter: 2013Q4

REPORT INFORMATION
  Report Type: Spontaneous
  Country: GB (occurrence: GB)
  Receive Date: 20131101
  Receipt Date: 20131101
  Transmission Date: 20140711
  Serious: Yes (Other)
  Sender: FDA-Public Use
  Company Number: GB-BRISTOL-MYERS SQUIBB COMPANY-19644731

PATIENT
  Age: 64 Year
  Sex: Male
  Weight: 120.2 kg

DRUGS (14)
  1. EXENATIDE [Suspect]
     Indication: DIABETES MELLITUS
     Dosage: OCT10-JAN11 5MCG?JAN11-4SEP13 10MCG
     Route: 058
     Dates: start: 201010, end: 20130904
  2. CO-CODAMOL [Concomitant]
  3. ATORVASTATIN [Concomitant]
  4. ADALAT LA [Concomitant]
  5. PEPTAC [Concomitant]
     Dosage: LIQUID
  6. ISOSORBIDE MONONITRATE [Concomitant]
  7. SERETIDE [Concomitant]
  8. CO-DYDRAMOL [Concomitant]
  9. VALSARTAN [Concomitant]
     Dosage: PATIENT STILL TAKING THIS IN MAY 2013 BUT WAS NO LONGER TAKING FOUR MONTHS LATER.
     Dates: start: 20110726
  10. ASPIRIN [Concomitant]
  11. METFORMIN [Concomitant]
  12. BISOPROLOL [Concomitant]
  13. SALBUTAMOL [Concomitant]
     Dosage: INHALER
  14. GTN [Concomitant]
     Dosage: SPRAY

REACTIONS (2)
  - Renal impairment [Not Recovered/Not Resolved]
  - Renal ischaemia [Unknown]
